FAERS Safety Report 20830270 (Version 1)
Quarter: 2022Q2

REPORT INFORMATION
  Report Type: Report from Study
  Country: GB (occurrence: GB)
  Receive Date: 20220514
  Receipt Date: 20220514
  Transmission Date: 20220721
  Serious: Yes (Hospitalization, Other)
  Sender: FDA-Public Use
  Company Number: GB-NOVARTISPH-NVSC2022GB108461

PATIENT
  Sex: Female

DRUGS (1)
  1. OMNITROPE [Suspect]
     Active Substance: SOMATROPIN
     Indication: Growth hormone deficiency
     Dosage: 0.3 MG, QD (AS DIRECTED)
     Route: 065
     Dates: start: 20190122

REACTIONS (5)
  - Central nervous system infection [Unknown]
  - Fall [Unknown]
  - Seizure [Unknown]
  - Confusional state [Unknown]
  - Product storage error [Unknown]
